FAERS Safety Report 14144419 (Version 1)
Quarter: 2017Q4

REPORT INFORMATION
  Report Type: Spontaneous
  Country: US (occurrence: US)
  Receive Date: 20171031
  Receipt Date: 20171031
  Transmission Date: 20180321
  Serious: No
  Sender: FDA-Public Use
  Company Number: US-009507513-1710USA004653

PATIENT
  Age: 18 Year
  Sex: Female
  Weight: 71.66 kg

DRUGS (1)
  1. NEXPLANON [Suspect]
     Active Substance: ETONOGESTREL
     Indication: CONTRACEPTION
     Dosage: 1 ROD EVERY 3 YEARS, IN UPPER LEFT ARM
     Route: 059
     Dates: start: 20171004

REACTIONS (5)
  - Implant site bruising [Recovering/Resolving]
  - Implant site pain [Not Recovered/Not Resolved]
  - Implant site nerve injury [Unknown]
  - Device deployment issue [Not Recovered/Not Resolved]
  - Medical device site discomfort [Unknown]

NARRATIVE: CASE EVENT DATE: 201710
